FAERS Safety Report 16716816 (Version 17)
Quarter: 2022Q4

REPORT INFORMATION
  Report Type: Spontaneous
  Country: JP (occurrence: JP)
  Receive Date: 20190819
  Receipt Date: 20221012
  Transmission Date: 20230113
  Serious: Yes (Hospitalization, Other)
  Sender: FDA-Public Use
  Company Number: JP-JNJFOC-20190820111

PATIENT
  Age: 57 Year
  Sex: Male

DRUGS (13)
  1. CONCERTA [Suspect]
     Active Substance: METHYLPHENIDATE HYDROCHLORIDE
     Indication: Attention deficit hyperactivity disorder
     Dosage: DOSE UNKNOWN
     Route: 048
  2. CONCERTA [Suspect]
     Active Substance: METHYLPHENIDATE HYDROCHLORIDE
     Route: 048
  3. CONCERTA [Suspect]
     Active Substance: METHYLPHENIDATE HYDROCHLORIDE
     Route: 048
  4. CONCERTA [Suspect]
     Active Substance: METHYLPHENIDATE HYDROCHLORIDE
     Route: 048
  5. CONCERTA [Suspect]
     Active Substance: METHYLPHENIDATE HYDROCHLORIDE
     Route: 048
     Dates: start: 20190818
  6. CONCERTA [Suspect]
     Active Substance: METHYLPHENIDATE HYDROCHLORIDE
     Route: 048
  7. CONCERTA [Suspect]
     Active Substance: METHYLPHENIDATE HYDROCHLORIDE
     Dosage: IN THE MORNING AND AFTERNOON
     Route: 048
  8. CONCERTA [Suspect]
     Active Substance: METHYLPHENIDATE HYDROCHLORIDE
     Route: 048
  9. LUNESTA [Concomitant]
     Active Substance: ESZOPICLONE
     Dosage: UNKNOWN
     Route: 048
  10. DEPAS [Concomitant]
     Dosage: UNKNOWN
     Route: 048
  11. AMOXAPINE [Concomitant]
     Active Substance: AMOXAPINE
     Route: 048
  12. INTUNIV [Concomitant]
     Active Substance: GUANFACINE HYDROCHLORIDE
     Dosage: DOSE UNKNOWN
     Route: 048
  13. STRATTERA [Concomitant]
     Active Substance: ATOMOXETINE HYDROCHLORIDE
     Route: 048

REACTIONS (21)
  - Depression [Unknown]
  - Loss of control of legs [Unknown]
  - Late onset hypogonadism syndrome [Unknown]
  - Arthropathy [Unknown]
  - Insomnia [Unknown]
  - Dizziness [Unknown]
  - Nausea [Unknown]
  - Gait disturbance [Unknown]
  - Drug tolerance [Unknown]
  - Asthenia [Unknown]
  - Abdominal pain [Unknown]
  - Abdominal discomfort [Unknown]
  - Hot flush [Unknown]
  - Blood pressure increased [Unknown]
  - Hyperhidrosis [Unknown]
  - Drug ineffective [Unknown]
  - Adverse reaction [Unknown]
  - Inappropriate schedule of product administration [Unknown]
  - Off label use [Unknown]
  - Autonomic nervous system imbalance [Unknown]
  - Abdominal pain upper [Unknown]

NARRATIVE: CASE EVENT DATE: 20190818
